FAERS Safety Report 20959053 (Version 2)
Quarter: 2022Q2

REPORT INFORMATION
  Report Type: Report from Study
  Country: JP (occurrence: JP)
  Receive Date: 20220614
  Receipt Date: 20220630
  Transmission Date: 20220721
  Serious: Yes (Death)
  Sender: FDA-Public Use
  Company Number: JP-TEVA-2022-JP-2045368

PATIENT

DRUGS (3)
  1. ETOPOSIDE [Suspect]
     Active Substance: ETOPOSIDE
     Indication: Germ cell cancer
     Dosage: ADMINISTERED ON DAYS 1 THROUGH 5
     Route: 042
  2. IFOSFAMIDE [Suspect]
     Active Substance: IFOSFAMIDE
     Indication: Germ cell cancer
     Dosage: ADMINISTERED ON DAYS 1 THROUGH 5
     Route: 042
  3. CISPLATIN [Suspect]
     Active Substance: CISPLATIN
     Indication: Germ cell cancer
     Dosage: ADMINISTERED ON DAYS 1 THROUGH 5
     Route: 042

REACTIONS (1)
  - Leukaemia [Fatal]
